FAERS Safety Report 5110943-1 (Version None)
Quarter: 2006Q3

REPORT INFORMATION
  Report Type: 
  Country: None (occurrence: None)
  Receive Date: 20060920
  Receipt Date: 20060920
  Transmission Date: 20061208
  Serious: Yes (Other)
  Sender: FDA-Public Use
  Company Number: None

PATIENT
  Sex: Female
  Weight: 70.3075 kg

DRUGS (2)
  1. CIPRO [Suspect]
     Indication: ANTI-INFECTIVE THERAPY
     Dosage: 1 TABLET Q 12 HRS PO
     Route: 048
     Dates: start: 20060623, end: 20060630
  2. LEVAQUIN [Suspect]
     Indication: ANTI-INFECTIVE THERAPY
     Dates: start: 20060721, end: 20060731

REACTIONS (6)
  - ARTHRALGIA [None]
  - GAIT DISTURBANCE [None]
  - NEPHROLITHIASIS [None]
  - PAIN IN EXTREMITY [None]
  - PYELONEPHRITIS [None]
  - TENDON DISORDER [None]
